FAERS Safety Report 9948647 (Version 8)
Quarter: 2014Q4

REPORT INFORMATION
  Report Type: Report from Study
  Country: CA (occurrence: CA)
  Receive Date: 20140304
  Receipt Date: 20141215
  Transmission Date: 20150529
  Serious: Yes (Other)
  Sender: FDA-Public Use
  Company Number: CA-ROCHE-1298585

PATIENT
  Age: 46 Year
  Sex: Female
  Weight: 64 kg

DRUGS (6)
  1. ACTEMRA [Suspect]
     Active Substance: TOCILIZUMAB
     Indication: RHEUMATOID ARTHRITIS
     Route: 042
     Dates: start: 20130925, end: 20140321
  2. CIPRODEX (CANADA) [Concomitant]
  3. RITUXAN [Suspect]
     Active Substance: RITUXIMAB
     Indication: RHEUMATOID ARTHRITIS
     Dosage: DAY1,15
     Route: 042
     Dates: start: 20140613
  4. METHYLPREDNISOLONE. [Concomitant]
     Active Substance: METHYLPREDNISOLONE
     Route: 042
     Dates: start: 20140613
  5. ACETAMINOPHEN. [Concomitant]
     Active Substance: ACETAMINOPHEN
     Route: 048
     Dates: start: 20140613
  6. DIPHENHYDRAMINE HCL [Concomitant]
     Active Substance: DIPHENHYDRAMINE HYDROCHLORIDE
     Route: 048
     Dates: start: 20140613

REACTIONS (24)
  - Drug ineffective [Unknown]
  - Abdominal pain upper [Unknown]
  - Drug effect decreased [Unknown]
  - Oropharyngeal pain [Unknown]
  - Chills [Recovered/Resolved]
  - Deafness [Not Recovered/Not Resolved]
  - Poor quality sleep [Unknown]
  - Malaise [Unknown]
  - Fatigue [Not Recovered/Not Resolved]
  - Pain in extremity [Not Recovered/Not Resolved]
  - Stress [Unknown]
  - Arthralgia [Not Recovered/Not Resolved]
  - Joint swelling [Not Recovered/Not Resolved]
  - Arthralgia [Not Recovered/Not Resolved]
  - Fatigue [Not Recovered/Not Resolved]
  - Arthralgia [Not Recovered/Not Resolved]
  - Pain [Unknown]
  - Somnolence [Unknown]
  - Musculoskeletal pain [Not Recovered/Not Resolved]
  - Swelling [Not Recovered/Not Resolved]
  - Peripheral swelling [Not Recovered/Not Resolved]
  - Cough [Recovering/Resolving]
  - Vomiting [Recovered/Resolved]
  - Blood pressure fluctuation [Unknown]

NARRATIVE: CASE EVENT DATE: 20131015
